FAERS Safety Report 9897269 (Version 1)
Quarter: 2014Q1

REPORT INFORMATION
  Report Type: Report from Study
  Country: BR (occurrence: BR)
  Receive Date: 20140214
  Receipt Date: 20140214
  Transmission Date: 20141002
  Serious: Yes (Other)
  Sender: FDA-Public Use
  Company Number: BR-ROCHE-1345855

PATIENT
  Age: 56 Year
  Sex: Female
  Weight: 78 kg

DRUGS (7)
  1. ACTEMRA [Suspect]
     Indication: RHEUMATOID ARTHRITIS
     Dosage: MOST RECENT INFUSION WAS ON 01/NOV/2013.
     Route: 065
     Dates: start: 20101001
  2. VASTAREL [Concomitant]
  3. BALCOR [Concomitant]
  4. ATENOLOL [Concomitant]
  5. LOSARTAN [Concomitant]
  6. SIMVASTATIN [Concomitant]
  7. AMLODIPINE [Concomitant]

REACTIONS (5)
  - Joint range of motion decreased [Not Recovered/Not Resolved]
  - Pain [Not Recovered/Not Resolved]
  - Local swelling [Not Recovered/Not Resolved]
  - C-reactive protein increased [Not Recovered/Not Resolved]
  - Drug ineffective [Unknown]
